FAERS Safety Report 21117087 (Version 1)
Quarter: 2022Q3

REPORT INFORMATION
  Report Type: Spontaneous
  Country: CN (occurrence: CN)
  Receive Date: 20220722
  Receipt Date: 20220722
  Transmission Date: 20221027
  Serious: Yes (Hospitalization)
  Sender: FDA-Public Use
  Company Number: CN-ORGANON-O2207CHN001635

PATIENT
  Age: 59 Year
  Sex: Male
  Weight: 67.3 kg

DRUGS (10)
  1. SINGULAIR [Suspect]
     Active Substance: MONTELUKAST SODIUM
     Indication: Upper respiratory tract infection
     Dosage: 10MG, QD
     Route: 048
     Dates: start: 20220701, end: 20220706
  2. SINGULAIR [Suspect]
     Active Substance: MONTELUKAST SODIUM
     Indication: Asthma
  3. CEFIXIME [Suspect]
     Active Substance: CEFIXIME
     Indication: Upper respiratory tract infection
     Dosage: 0.1 G, BID
     Route: 048
     Dates: start: 20220701, end: 20220706
  4. CEFIXIME [Suspect]
     Active Substance: CEFIXIME
     Indication: Asthma
  5. HERBALS [Suspect]
     Active Substance: HERBALS
     Indication: Upper respiratory tract infection
     Dosage: 2.08 G, TID
     Route: 048
     Dates: start: 20220701, end: 20220706
  6. HERBALS [Suspect]
     Active Substance: HERBALS
     Indication: Asthma
  7. CARBOCYSTEINE [Suspect]
     Active Substance: CARBOCYSTEINE
     Indication: Upper respiratory tract infection
     Dosage: 0.2 G, TID
     Route: 048
     Dates: start: 20220701, end: 20220706
  8. CARBOCYSTEINE [Suspect]
     Active Substance: CARBOCYSTEINE
     Indication: Asthma
  9. THEOPHYLLINE [Suspect]
     Active Substance: THEOPHYLLINE
     Indication: Upper respiratory tract infection
     Dosage: 0.1 G, BID
     Route: 048
     Dates: start: 20220701, end: 20220706
  10. THEOPHYLLINE [Suspect]
     Active Substance: THEOPHYLLINE
     Indication: Asthma

REACTIONS (1)
  - Drug eruption [Recovered/Resolved]

NARRATIVE: CASE EVENT DATE: 20220706
